FAERS Safety Report 8070178-X (Version None)
Quarter: 2012Q1

REPORT INFORMATION
  Report Type: 
  Country: None (occurrence: None)
  Receive Date: 20120125
  Receipt Date: 20120117
  Transmission Date: 20120608
  Serious: Yes (Death, Hospitalization)
  Sender: FDA-Public Use
  Company Number: DE-ROCHE-1027628

PATIENT
  Sex: Female
  Weight: 74 kg

DRUGS (11)
  1. BISOPROLOL FUMARATE [Concomitant]
     Route: 048
  2. MIRTAZAPINE [Concomitant]
     Route: 048
  3. DOCETAXEL [Concomitant]
     Indication: NON-SMALL CELL LUNG CANCER METASTATIC
     Dates: start: 20100101
  4. GEMCITABINE HYDROCHLORIDE [Suspect]
     Indication: NON-SMALL CELL LUNG CANCER METASTATIC
     Dosage: LAST DOSE:28/DEC/2009
     Route: 042
     Dates: start: 20090320
  5. METOCLOPRAMIDE [Concomitant]
     Indication: NAUSEA
     Route: 048
  6. PREDNISONE [Concomitant]
     Route: 048
  7. DEXAMETHASONE SODIUM PHOSPHATE [Concomitant]
     Route: 048
  8. JODTHYROX [Concomitant]
     Route: 048
  9. DIPYRONE TAB [Concomitant]
     Indication: PAIN
     Route: 048
  10. AVASTIN [Suspect]
     Indication: NON-SMALL CELL LUNG CANCER METASTATIC
     Route: 042
     Dates: start: 20090320
  11. CARBOPLATIN [Suspect]
     Indication: NON-SMALL CELL LUNG CANCER METASTATIC
     Dosage: LAST DOSE:28/DEC/2009
     Route: 042
     Dates: start: 20090320

REACTIONS (6)
  - DEHYDRATION [None]
  - DYSPNOEA [None]
  - ABDOMINAL PAIN UPPER [None]
  - GENERAL PHYSICAL HEALTH DETERIORATION [None]
  - DIARRHOEA [None]
  - ORAL CANDIDIASIS [None]
